FAERS Safety Report 9806095 (Version 3)
Quarter: 2014Q4

REPORT INFORMATION
  Report Type: Spontaneous
  Country: DK (occurrence: DK)
  Receive Date: 20140109
  Receipt Date: 20141106
  Transmission Date: 20150529
  Serious: Yes (Hospitalization, Disabling)
  Sender: FDA-Public Use
  Company Number: PHHY2013DK150864

PATIENT
  Age: 25 Year
  Sex: Female

DRUGS (1)
  1. MALONETTA [Suspect]
     Active Substance: ETHINYL ESTRADIOL\LEVONORGESTREL
     Indication: CONTRACEPTION
     Dosage: 1 DF, QD
     Route: 048
     Dates: start: 201007

REACTIONS (15)
  - Disturbance in attention [Not Recovered/Not Resolved]
  - Altered state of consciousness [Unknown]
  - Fatigue [Not Recovered/Not Resolved]
  - Reading disorder [Not Recovered/Not Resolved]
  - Sedation [Unknown]
  - Sluggishness [Unknown]
  - Cognitive disorder [Unknown]
  - Speech disorder [Unknown]
  - Acalculia [Not Recovered/Not Resolved]
  - Memory impairment [Not Recovered/Not Resolved]
  - Grip strength decreased [Unknown]
  - Muscle fatigue [Not Recovered/Not Resolved]
  - Hemiplegia [Unknown]
  - Movement disorder [Not Recovered/Not Resolved]
  - Cerebral thrombosis [Recovered/Resolved with Sequelae]

NARRATIVE: CASE EVENT DATE: 20101106
